FAERS Safety Report 4711119-X (Version None)
Quarter: 2005Q3

REPORT INFORMATION
  Report Type: 
  Country: None (occurrence: None)
  Receive Date: 20050708
  Receipt Date: 20050629
  Transmission Date: 20060218
  Serious: Yes (Life-Threatening)
  Sender: FDA-Public Use
  Company Number: 2005AD000073

PATIENT
  Age: 74 Year
  Sex: Female

DRUGS (3)
  1. CEPHALEXIN [Suspect]
     Indication: ATHEROSCLEROSIS
     Dosage: PO
     Route: 048
     Dates: end: 20050604
  2. CEPHALEXIN [Suspect]
     Indication: INFLAMMATION
     Dosage: PO
     Route: 048
     Dates: end: 20050604
  3. LOXONIN (LOXOPROFEN SODIUM) [Suspect]
     Dosage: PO
     Route: 047
     Dates: end: 20050604

REACTIONS (1)
  - ANAPHYLACTIC SHOCK [None]
